FAERS Safety Report 10254602 (Version 1)
Quarter: 2014Q2

REPORT INFORMATION
  Report Type: Spontaneous
  Country: IT (occurrence: IT)
  Receive Date: 20140624
  Receipt Date: 20140624
  Transmission Date: 20141212
  Serious: Yes (Disabling)
  Sender: FDA-Public Use
  Company Number: PHHY2014IT076278

PATIENT
  Sex: Female

DRUGS (5)
  1. ZOMETA [Suspect]
     Indication: BREAST CANCER RECURRENT
     Dosage: UNK UKN, UNK
     Route: 042
     Dates: start: 20120211, end: 20131009
  2. XGEVA [Suspect]
     Indication: BREAST CANCER RECURRENT
     Dosage: UNK UKN, UNK
     Route: 058
     Dates: start: 20131111, end: 20140505
  3. CYCLOPHOSPHAMIDE [Concomitant]
     Dosage: UNK UKN, (METRONOMIC)
     Dates: start: 20120211, end: 20140610
  4. METHOTREXATE [Concomitant]
     Dosage: UNK UKN, (METRONOMIC)
     Dates: start: 20120211, end: 20140610
  5. AXAGON [Concomitant]
     Dosage: UNK UKN, UNK
     Dates: start: 2010

REACTIONS (1)
  - Osteonecrosis of jaw [Unknown]
